FAERS Safety Report 11104381 (Version 1)
Quarter: 2015Q2

REPORT INFORMATION
  Report Type: Spontaneous
  Country: SE (occurrence: SE)
  Receive Date: 20150511
  Receipt Date: 20150511
  Transmission Date: 20150821
  Serious: Yes (Death)
  Sender: FDA-Public Use
  Company Number: SE-ASTRAZENECA-2015SE42118

PATIENT
  Age: 59 Year
  Sex: Male

DRUGS (14)
  1. GABAPENTIN. [Concomitant]
     Active Substance: GABAPENTIN
     Dosage: ACTAVIS
  2. PROPAVAN [Concomitant]
     Active Substance: PROPIOMAZINE
  3. ATORVASTATIN [Concomitant]
     Active Substance: ATORVASTATIN
     Dosage: ACTAVIS
  4. METOPROLOL [Concomitant]
     Active Substance: METOPROLOL
     Dosage: SANDOZ
  5. SERTRALINE [Concomitant]
     Active Substance: SERTRALINE HYDROCHLORIDE
     Dosage: RATIOPHARM
  6. DIGOXIN. [Concomitant]
     Active Substance: DIGOXIN
     Dosage: BIOPHAUSIA
  7. TROMBYL [Concomitant]
     Active Substance: ASPIRIN
  8. HUMALOG [Concomitant]
     Active Substance: INSULIN LISPRO
  9. THERALEN [Concomitant]
     Active Substance: TRIMEPRAZINE
     Route: 048
  10. METFORMIN MEDA [Concomitant]
  11. STILNOCT [Concomitant]
     Active Substance: ZOLPIDEM TARTRATE
  12. BYDUREON [Suspect]
     Active Substance: EXENATIDE
     Indication: TYPE 1 DIABETES MELLITUS
     Dosage: UNKNOWN DOSE, WEEKLY
     Route: 058
     Dates: start: 20150227
  13. LEVAXIN [Concomitant]
     Active Substance: LEVOTHYROXINE SODIUM
  14. LOSARTAN [Concomitant]
     Active Substance: LOSARTAN
     Dosage: ACTAVIS

REACTIONS (1)
  - Sudden cardiac death [Fatal]

NARRATIVE: CASE EVENT DATE: 20150323
